FAERS Safety Report 15313280 (Version 1)
Quarter: 2018Q3

REPORT INFORMATION
  Report Type: Spontaneous
  Country: DE (occurrence: DE)
  Receive Date: 20180823
  Receipt Date: 20180823
  Transmission Date: 20181010
  Serious: No
  Sender: FDA-Public Use
  Company Number: DE-ELI_LILLY_AND_COMPANY-DE201808009286

PATIENT
  Age: 56 Year
  Sex: Female

DRUGS (6)
  1. DULOXETINE LILLY 30MG [Suspect]
     Active Substance: DULOXETINE
     Dosage: 30 MG, EACH MORNING
     Route: 048
  2. ATORVASTATIN [Suspect]
     Active Substance: ATORVASTATIN
     Indication: BLOOD CHOLESTEROL INCREASED
     Dosage: UNK, UNKNOWN
     Route: 065
  3. DULOXETINE LILLY 30MG [Suspect]
     Active Substance: DULOXETINE
     Dosage: 60 MG, AFTER BREAKFAST
  4. DULOXETINE LILLY 30MG [Suspect]
     Active Substance: DULOXETINE
     Indication: PRODUCT USED FOR UNKNOWN INDICATION
     Dosage: 30 MG, BID
     Route: 048
     Dates: start: 2015
  5. DULOXETINE LILLY 30MG [Suspect]
     Active Substance: DULOXETINE
     Dosage: 30 MG, TID
  6. ANTIALLERGIC AGENTS, EXCL. CORTICOSTEROIDS [Concomitant]
     Indication: SEASONAL ALLERGY

REACTIONS (9)
  - Nausea [Not Recovered/Not Resolved]
  - Abdominal discomfort [Not Recovered/Not Resolved]
  - Drug hypersensitivity [Unknown]
  - Drug ineffective [Unknown]
  - Decreased appetite [Not Recovered/Not Resolved]
  - Hepatic pain [Not Recovered/Not Resolved]
  - Dry mouth [Not Recovered/Not Resolved]
  - Blood cholesterol increased [Not Recovered/Not Resolved]
  - Headache [Recovered/Resolved]
